FAERS Safety Report 18026271 (Version 1)
Quarter: 2020Q3

REPORT INFORMATION
  Report Type: Spontaneous
  Country: GR (occurrence: GR)
  Receive Date: 20200715
  Receipt Date: 20200715
  Transmission Date: 20201103
  Serious: Yes (Death)
  Sender: FDA-Public Use
  Company Number: GR-INCYTE CORPORATION-2020IN006628

PATIENT

DRUGS (1)
  1. JAKAVI [Suspect]
     Active Substance: RUXOLITINIB
     Indication: LEUKAEMIA MONOCYTIC
     Dosage: 5 MG (X2)
     Route: 065

REACTIONS (3)
  - Respiratory failure [Fatal]
  - Respiratory tract infection [Fatal]
  - Product use in unapproved indication [Unknown]
